FAERS Safety Report 9146519 (Version 1)
Quarter: 2013Q1

REPORT INFORMATION
  Report Type: Spontaneous
  Country: US (occurrence: US)
  Receive Date: 20130307
  Receipt Date: 20130307
  Transmission Date: 20140127
  Serious: Yes (Death, Other)
  Sender: FDA-Public Use
  Company Number: US-CELGENEUS-163-21880-13030557

PATIENT
  Age: 61 Year
  Sex: Female

DRUGS (3)
  1. REVLIMID [Suspect]
     Indication: PLASMA CELL LEUKAEMIA
     Route: 048
  2. BORTEZOMIB [Suspect]
     Indication: PLASMA CELL LEUKAEMIA
     Route: 065
  3. DEXAMETHASONE [Suspect]
     Indication: PLASMA CELL LEUKAEMIA
     Route: 065

REACTIONS (3)
  - Death [Fatal]
  - Cerebral haemorrhage [Unknown]
  - Hypertension [Unknown]
